FAERS Safety Report 9681273 (Version 2)
Quarter: 2013Q4

REPORT INFORMATION
  Report Type: Report from Study
  Country: AR (occurrence: AR)
  Receive Date: 20131111
  Receipt Date: 20131111
  Transmission Date: 20140711
  Serious: Yes (Hospitalization)
  Sender: FDA-Public Use
  Company Number: AR-INCYTE CORPORATION-2013IN002520

PATIENT
  Age: 73 Year
  Sex: Male
  Weight: 70 kg

DRUGS (7)
  1. INC424 [Suspect]
     Indication: MYELOFIBROSIS
     Dosage: 15 MG, BID
     Route: 048
     Dates: start: 20120608, end: 20130722
  2. INC424 [Suspect]
     Dosage: 5 MG, BID
     Route: 048
     Dates: start: 20130723
  3. ENALAPRIL [Concomitant]
     Dosage: UNK
  4. METFORMIN [Concomitant]
     Dosage: UNK
  5. SAXAGLIPTIN [Concomitant]
     Dosage: UNK
  6. OMEPRAZOLE [Concomitant]
     Dosage: UNK
  7. LORAZEPAM [Concomitant]
     Dosage: UNK

REACTIONS (1)
  - Nephrolithiasis [Unknown]
